FAERS Safety Report 12988500 (Version 1)
Quarter: 2016Q4

REPORT INFORMATION
  Report Type: Spontaneous
  Country: ES (occurrence: ES)
  Receive Date: 20161130
  Receipt Date: 20161130
  Transmission Date: 20170207
  Serious: Yes (Other)
  Sender: FDA-Public Use
  Company Number: ES-JNJFOC-20161124231

PATIENT
  Age: 40 Year
  Sex: Female

DRUGS (1)
  1. TOPAMAX [Suspect]
     Active Substance: TOPIRAMATE
     Indication: BULIMIA NERVOSA
     Route: 048

REACTIONS (5)
  - Intraocular pressure increased [Not Recovered/Not Resolved]
  - Myopia [Not Recovered/Not Resolved]
  - Product use issue [Unknown]
  - Blindness [Not Recovered/Not Resolved]
  - Off label use [Unknown]
